FAERS Safety Report 12772810 (Version 3)
Quarter: 2016Q4

REPORT INFORMATION
  Report Type: Spontaneous
  Country: ES (occurrence: ES)
  Receive Date: 20160922
  Receipt Date: 20161223
  Transmission Date: 20170207
  Serious: Yes (Other)
  Sender: FDA-Public Use
  Company Number: PHHY2016ES128552

PATIENT
  Age: 6 Year
  Sex: Female

DRUGS (1)
  1. OMNITROPE [Suspect]
     Active Substance: SOMATROPIN
     Indication: SMALL FOR DATES BABY
     Route: 065
     Dates: start: 201607, end: 201609

REACTIONS (1)
  - Ganglioneuroma [Not Recovered/Not Resolved]

NARRATIVE: CASE EVENT DATE: 201609
